FAERS Safety Report 7065721-3 (Version None)
Quarter: 2010Q4

REPORT INFORMATION
  Report Type: 
  Country: None (occurrence: None)
  Receive Date: 20101027
  Receipt Date: 20101014
  Transmission Date: 20110411
  Serious: Yes (Other)
  Sender: FDA-Public Use
  Company Number: PHHY2010US65757

PATIENT
  Sex: Male
  Weight: 92.2 kg

DRUGS (1)
  1. GLEEVEC [Suspect]
     Indication: CHRONIC MYELOID LEUKAEMIA
     Dosage: 400MG QD
     Route: 048
     Dates: start: 20080321, end: 20100401

REACTIONS (5)
  - DISEASE PROGRESSION [None]
  - METASTASIS [None]
  - NEOPLASM MALIGNANT [None]
  - SURGERY [None]
  - URETHRAL CANCER [None]
